FAERS Safety Report 8598292-0 (Version None)
Quarter: 2012Q3

REPORT INFORMATION
  Report Type: 
  Country: None (occurrence: None)
  Receive Date: 20120816
  Receipt Date: 20120810
  Transmission Date: 20120928
  Serious: Yes (Hospitalization, Other)
  Sender: FDA-Public Use
  Company Number: US-PURDUE-USA-2012-0091462

PATIENT
  Sex: Male

DRUGS (1)
  1. OXYCONTIN [Suspect]
     Indication: PRODUCT USED FOR UNKNOWN INDICATION
     Dosage: 160 MG, Q12H
     Route: 048

REACTIONS (6)
  - ROAD TRAFFIC ACCIDENT [None]
  - SCAPULA FRACTURE [None]
  - TRAUMATIC LUNG INJURY [None]
  - PULMONARY HAEMORRHAGE [None]
  - SPINAL COLUMN INJURY [None]
  - RIB FRACTURE [None]
